FAERS Safety Report 21813136 (Version 1)
Quarter: 2023Q1

REPORT INFORMATION
  Report Type: Spontaneous
  Country: CN (occurrence: CN)
  Receive Date: 20230103
  Receipt Date: 20230103
  Transmission Date: 20230418
  Serious: Yes (Hospitalization, Other)
  Sender: FDA-Public Use
  Company Number: CN-009507513-2301CHN000025

PATIENT
  Age: 77 Year
  Sex: Male
  Weight: 66 kg

DRUGS (2)
  1. KEYTRUDA [Suspect]
     Active Substance: PEMBROLIZUMAB
     Indication: Neoplasm
     Dosage: 100MG, 1 TIME IN ONE DAY, D1
     Route: 041
     Dates: start: 20221121, end: 20221121
  2. DOCETAXEL [Suspect]
     Active Substance: DOCETAXEL
     Indication: Neoplasm
     Dosage: 120MG, 1 TIME IN ONE DAY, D1
     Route: 041
     Dates: start: 20221121, end: 20221121

REACTIONS (9)
  - Febrile neutropenia [Recovering/Resolving]
  - Infection [Recovering/Resolving]
  - Myelosuppression [Unknown]
  - Chest discomfort [Unknown]
  - Temperature intolerance [Unknown]
  - Diarrhoea [Unknown]
  - Discomfort [Unknown]
  - Product use issue [Unknown]
  - Underdose [Unknown]

NARRATIVE: CASE EVENT DATE: 20221101
